FAERS Safety Report 17144737 (Version 1)
Quarter: 2019Q4

REPORT INFORMATION
  Report Type: Spontaneous
  Country: US (occurrence: US)
  Receive Date: 20191212
  Receipt Date: 20191212
  Transmission Date: 20200122
  Serious: No
  Sender: FDA-Public Use
  Company Number: US-NOVEN PHARMACEUTICALS, INC.-US2019000143

PATIENT

DRUGS (5)
  1. CYMBALTA [Concomitant]
     Active Substance: DULOXETINE HYDROCHLORIDE
  2. MINIVELLE [Suspect]
     Active Substance: ESTRADIOL
     Indication: HOT FLUSH
     Dosage: UNK
     Route: 062
     Dates: end: 2018
  3. MINIVELLE [Suspect]
     Active Substance: ESTRADIOL
     Dosage: 0.1 MG
     Route: 062
     Dates: start: 2018, end: 201903
  4. MINIVELLE [Suspect]
     Active Substance: ESTRADIOL
     Dosage: 0.1 MG
     Route: 062
     Dates: start: 20190324
  5. SYNTHROID [Concomitant]
     Active Substance: LEVOTHYROXINE SODIUM

REACTIONS (6)
  - Therapy cessation [Recovered/Resolved]
  - No adverse event [Unknown]
  - Wrong technique in product usage process [Recovered/Resolved]
  - Treatment noncompliance [Recovered/Resolved]
  - Product quality issue [Recovered/Resolved]
  - Product adhesion issue [Recovered/Resolved]

NARRATIVE: CASE EVENT DATE: 2018
